FAERS Safety Report 14385185 (Version 1)
Quarter: 2018Q1

REPORT INFORMATION
  Report Type: Spontaneous
  Country: US (occurrence: US)
  Receive Date: 20180115
  Receipt Date: 20180115
  Transmission Date: 20180509
  Serious: Yes (Other)
  Sender: FDA-Public Use
  Company Number: US-SA-2016SA236286

PATIENT
  Age: 50 Year
  Sex: Female
  Weight: 91.6 kg

DRUGS (4)
  1. ELLENCE [Concomitant]
     Active Substance: EPIRUBICIN HYDROCHLORIDE
  2. TAXOTERE [Suspect]
     Active Substance: DOCETAXEL
     Indication: BREAST CANCER FEMALE
     Route: 051
     Dates: start: 20091111, end: 20091111
  3. TAXOTERE [Suspect]
     Active Substance: DOCETAXEL
     Indication: BREAST CANCER FEMALE
     Route: 051
     Dates: start: 20091223, end: 20091223
  4. NEOSAR [Concomitant]
     Active Substance: CYCLOPHOSPHAMIDE

REACTIONS (5)
  - Emotional distress [Unknown]
  - Impaired quality of life [Unknown]
  - Pain [Unknown]
  - Anxiety [Unknown]
  - Alopecia [Not Recovered/Not Resolved]

NARRATIVE: CASE EVENT DATE: 201006
